FAERS Safety Report 8470541-9 (Version None)
Quarter: 2012Q2

REPORT INFORMATION
  Report Type: 
  Country: None (occurrence: None)
  Receive Date: 20120627
  Receipt Date: 20120619
  Transmission Date: 20120825
  Serious: Yes (Other)
  Sender: FDA-Public Use
  Company Number: PHEH2012US012291

PATIENT
  Sex: Female

DRUGS (6)
  1. HUMALOG [Concomitant]
     Indication: DIABETES MELLITUS
     Dosage: 8-10 UNITS, UNK
  2. DIOVAN [Suspect]
     Dosage: 160 MG, QD
     Dates: start: 20120529
  3. ULTRAM [Concomitant]
     Indication: PAIN
     Dosage: 50 MG, TID
     Route: 048
  4. LANTUS [Concomitant]
     Indication: DIABETES MELLITUS
     Dosage: 30 U, QD
  5. DIOVAN [Suspect]
     Indication: HYPERTENSION
     Dosage: 80 MG, QD
     Dates: start: 20120515
  6. TIZANIDINE HYDROCHLORIDE [Concomitant]
     Indication: MUSCLE RELAXANT THERAPY
     Dosage: 4 MG, 6QD
     Route: 048

REACTIONS (6)
  - ENDOMETRIAL HYPERTROPHY [None]
  - ROTATOR CUFF SYNDROME [None]
  - CERVICAL CYST [None]
  - MENORRHAGIA [None]
  - OVARIAN CYST [None]
  - BACK DISORDER [None]
